FAERS Safety Report 8561769-8 (Version None)
Quarter: 2012Q3

REPORT INFORMATION
  Report Type: 
  Country: None (occurrence: None)
  Receive Date: 20120802
  Receipt Date: 20120731
  Transmission Date: 20120928
  Serious: Yes (Other)
  Sender: FDA-Public Use
  Company Number: US-TEVA-351616USA

PATIENT

DRUGS (5)
  1. GASTROPROTECTANT [Concomitant]
  2. DEXAMETHASONE [Suspect]
     Indication: MULTIPLE MYELOMA
  3. TREANDA [Suspect]
     Indication: MULTIPLE MYELOMA
     Dosage: 75 OR 100MG/M2 (DAY 1 AND 2 OF EA CYCLE)
     Route: 042
  4. ACETYLSALICYLIC ACID SRT [Concomitant]
     Dosage: 325 MILLIGRAM;
  5. LENALIDOMIDE [Suspect]
     Indication: MULTIPLE MYELOMA
     Dosage: 5 OR 10MG (DAILY,DAYS 1-21 OF EA CYCLE)
     Route: 048

REACTIONS (16)
  - PNEUMONIA [None]
  - DEHYDRATION [None]
  - ELECTROCARDIOGRAM QT PROLONGED [None]
  - HYPOKALAEMIA [None]
  - LETHARGY [None]
  - NAUSEA [None]
  - NEUTROPENIA [None]
  - LEUKOPENIA [None]
  - ASTHENIA [None]
  - ARTHRALGIA [None]
  - HYPERGLYCAEMIA [None]
  - THROMBOCYTOPENIA [None]
  - HYPOCALCAEMIA [None]
  - FEBRILE NEUTROPENIA [None]
  - ATRIAL FIBRILLATION [None]
  - DIARRHOEA [None]
